FAERS Safety Report 8826473 (Version 1)
Quarter: 2012Q4

REPORT INFORMATION
  Report Type: Report from Study
  Country: JP (occurrence: JP)
  Receive Date: 20121005
  Receipt Date: 20121005
  Transmission Date: 20130627
  Serious: Yes (Hospitalization)
  Sender: FDA-Public Use
  Company Number: JP-SANOFI-AVENTIS-2012SA072549

PATIENT
  Age: 59 Year
  Sex: Male
  Weight: 61 kg

DRUGS (16)
  1. CLOPIDOGREL BISULFATE [Suspect]
     Indication: STEMI
     Dosage: loading dose
     Route: 065
     Dates: start: 20110914, end: 20110914
  2. CLOPIDOGREL BISULFATE [Suspect]
     Indication: STEMI
     Route: 065
     Dates: start: 20110915, end: 20111003
  3. BAYASPIRIN [Concomitant]
  4. TAKEPRON [Concomitant]
  5. LIPITOR /UNK/ [Concomitant]
  6. MAGLAX [Concomitant]
     Dates: start: 20110916
  7. RENIVACE [Concomitant]
     Dates: start: 20110916
  8. SIGMART [Concomitant]
     Dates: start: 20110916
  9. LASIX [Concomitant]
     Dates: start: 20110916, end: 20110922
  10. LASIX [Concomitant]
     Dates: start: 20110923
  11. ALDACTONE-A [Concomitant]
     Dates: start: 20110916, end: 20120922
  12. ALDACTONE-A [Concomitant]
     Dates: start: 20110923
  13. CALONAL [Concomitant]
     Dates: start: 20120923, end: 20120923
  14. RINDERON-VG [Concomitant]
     Dates: start: 20110928
  15. PURSENNID /SCH/ [Concomitant]
     Dates: start: 20110928, end: 20111010
  16. MYSLEE [Concomitant]
     Dates: start: 20110927

REACTIONS (1)
  - Aortic aneurysm [Recovered/Resolved]
